FAERS Safety Report 10829991 (Version 1)
Quarter: 2015Q1

REPORT INFORMATION
  Report Type: Report from Study
  Country: US (occurrence: US)
  Receive Date: 20150219
  Receipt Date: 20150219
  Transmission Date: 20150721
  Serious: No
  Sender: FDA-Public Use
  Company Number: US-ABBVIE-14P-163-1188130-00

PATIENT
  Age: 33 Year
  Sex: Female

DRUGS (3)
  1. HUMIRA [Suspect]
     Active Substance: ADALIMUMAB
     Indication: COLLAGEN DISORDER
     Dates: start: 201303, end: 201306
  2. HUMIRA [Suspect]
     Active Substance: ADALIMUMAB
     Indication: MALABSORPTION
     Dates: start: 20131220, end: 20131220
  3. HUMIRA [Suspect]
     Active Substance: ADALIMUMAB

REACTIONS (3)
  - Neurological symptom [Recovered/Resolved]
  - Blood copper decreased [Unknown]
  - Vitamin B12 deficiency [Unknown]

NARRATIVE: CASE EVENT DATE: 201306
